FAERS Safety Report 17960119 (Version 1)
Quarter: 2020Q2

REPORT INFORMATION
  Report Type: Report from Study
  Country: US (occurrence: US)
  Receive Date: 20200630
  Receipt Date: 20200630
  Transmission Date: 20200714
  Serious: Yes (Other)
  Sender: FDA-Public Use
  Company Number: US-ROCHE-2579954

PATIENT
  Age: 59 Year
  Sex: Female
  Weight: 52.2 kg

DRUGS (2)
  1. COBIMETINIB. [Suspect]
     Active Substance: COBIMETINIB
     Indication: LUNG ADENOCARCINOMA
     Dosage: 60 MG PO ON DAYS 1-21
     Route: 048
     Dates: start: 20200128, end: 20200211
  2. ATEZOLIZUMAB. [Suspect]
     Active Substance: ATEZOLIZUMAB
     Indication: LUNG ADENOCARCINOMA
     Dosage: OVER 60 MINUTES ON DAYS 1 AND 15
     Route: 041

REACTIONS (2)
  - Dermatitis acneiform [Recovered/Resolved]
  - Ejection fraction decreased [Unknown]

NARRATIVE: CASE EVENT DATE: 20200214
